FAERS Safety Report 10497769 (Version 1)
Quarter: 2014Q4

REPORT INFORMATION
  Report Type: Spontaneous
  Country: US (occurrence: None)
  Receive Date: 20141003
  Receipt Date: 20141003
  Transmission Date: 20150528
  Serious: No
  Sender: FDA-Public Use
  Company Number: None

PATIENT
  Age: 65 Year
  Sex: Female

DRUGS (1)
  1. CAPECITABINE 500MG TEVA PHARMACEUTICALS [Suspect]
     Active Substance: CAPECITABINE
     Indication: BREAST CANCER
     Dosage: 3500, DAILY FOR 14 DAYS ON 7 DAYS
     Route: 048
     Dates: start: 20140618

REACTIONS (1)
  - Foot and mouth disease [None]

NARRATIVE: CASE EVENT DATE: 20141001
